FAERS Safety Report 25047704 (Version 1)
Quarter: 2025Q1

REPORT INFORMATION
  Report Type: Spontaneous
  Country: BE (occurrence: BE)
  Receive Date: 20250306
  Receipt Date: 20250306
  Transmission Date: 20250408
  Serious: Yes (Death, Hospitalization)
  Sender: ELI LILLY AND COMPANY
  Company Number: BE-ELI_LILLY_AND_COMPANY-BE202503000828

PATIENT
  Age: 64 Year
  Sex: Female

DRUGS (1)
  1. RETEVMO [Suspect]
     Active Substance: SELPERCATINIB
     Indication: Non-small cell lung cancer
     Dosage: 160 MG, BID
     Route: 048
     Dates: start: 20240110

REACTIONS (5)
  - Cardiac arrest [Fatal]
  - Weight decreased [Unknown]
  - Muscular weakness [Unknown]
  - Generalised oedema [Unknown]
  - Nausea [Unknown]
